FAERS Safety Report 24666502 (Version 1)
Quarter: 2024Q4

REPORT INFORMATION
  Report Type: Spontaneous
  Country: US (occurrence: US)
  Receive Date: 20241126
  Receipt Date: 20241126
  Transmission Date: 20250115
  Serious: No
  Sender: SANOFI AVENTIS
  Company Number: US-SA-2024SA341463

PATIENT
  Age: 68 Year
  Sex: Male

DRUGS (12)
  1. DUPIXENT [Suspect]
     Active Substance: DUPILUMAB
     Indication: Dermatitis atopic
     Dosage: 600 MG, 1X
     Route: 058
     Dates: start: 20241112, end: 20241112
  2. DUPIXENT [Suspect]
     Active Substance: DUPILUMAB
     Dosage: 300 MG, QOW
     Route: 058
     Dates: start: 202411
  3. TERAZOSIN HYDROCHLORIDE [Concomitant]
     Active Substance: TERAZOSIN HYDROCHLORIDE
  4. METFORMIN HYDROCHLORIDE [Concomitant]
     Active Substance: METFORMIN HYDROCHLORIDE
  5. ELIQUIS [Concomitant]
     Active Substance: APIXABAN
  6. ATENOLOL [Concomitant]
     Active Substance: ATENOLOL
  7. GLIPIZIDE [Concomitant]
     Active Substance: GLIPIZIDE
  8. MOUNJARO [Concomitant]
     Active Substance: TIRZEPATIDE
  9. TOUJEO [Concomitant]
     Active Substance: INSULIN GLARGINE
  10. HYDROCHLOROTHIAZIDE\LOSARTAN [Concomitant]
     Active Substance: HYDROCHLOROTHIAZIDE\LOSARTAN
  11. FARXIGA [Concomitant]
     Active Substance: DAPAGLIFLOZIN PROPANEDIOL
  12. ASPIRIN [Concomitant]
     Active Substance: ASPIRIN

REACTIONS (5)
  - Injection site mass [Not Recovered/Not Resolved]
  - Injection site warmth [Not Recovered/Not Resolved]
  - Injection site swelling [Not Recovered/Not Resolved]
  - Injection site erythema [Not Recovered/Not Resolved]
  - Injection site pruritus [Not Recovered/Not Resolved]

NARRATIVE: CASE EVENT DATE: 20241113
